FAERS Safety Report 12976908 (Version 3)
Quarter: 2017Q1

REPORT INFORMATION
  Report Type: Report from Study
  Country: US (occurrence: US)
  Receive Date: 20161128
  Receipt Date: 20170209
  Transmission Date: 20170428
  Serious: Yes (Death, Congenital Anomaly, Other)
  Sender: FDA-Public Use
  Company Number: PHEH2016US030828

PATIENT
  Age: 60 Year
  Sex: Female
  Weight: 58 kg

DRUGS (1)
  1. AFINITOR [Suspect]
     Active Substance: EVEROLIMUS
     Indication: BREAST CANCER
     Dosage: 10 MG, QD
     Route: 048
     Dates: start: 20150722, end: 20160713

REACTIONS (6)
  - Leukoplakia oral [Unknown]
  - Malignant neoplasm progression [Unknown]
  - Gingival pain [Unknown]
  - Breast cancer [Fatal]
  - Dry mouth [Unknown]
  - Glossodynia [Unknown]

NARRATIVE: CASE EVENT DATE: 20160603
